FAERS Safety Report 5733887-0 (Version None)
Quarter: 2008Q2

REPORT INFORMATION
  Report Type: 
  Country: None (occurrence: None)
  Receive Date: 20080509
  Receipt Date: 20080424
  Transmission Date: 20081010
  Serious: Yes (Other)
  Sender: FDA-Public Use
  Company Number: US-PFIZER INC-2008036824

PATIENT
  Sex: Female
  Weight: 81.6 kg

DRUGS (2)
  1. RELPAX [Suspect]
     Indication: MIGRAINE
  2. OXYCONTIN [Concomitant]

REACTIONS (3)
  - CONFUSIONAL STATE [None]
  - DISORIENTATION [None]
  - PAIN [None]
